FAERS Safety Report 9927869 (Version 1)
Quarter: 2014Q1

REPORT INFORMATION
  Report Type: Spontaneous
  Country: DE (occurrence: None)
  Receive Date: 20140221
  Receipt Date: 20140221
  Transmission Date: 20141002
  Serious: Yes (Hospitalization)
  Sender: FDA-Public Use
  Company Number: VAL_02988_2014

PATIENT
  Age: 70 Year
  Sex: 0

DRUGS (4)
  1. METOPROLOL (METOPROLOL-METOPROLOL TARTRATE) [Suspect]
     Indication: VENTRICULAR TACHYCARDIA
  2. AMIDARONE (AMIDARONE) [Suspect]
     Indication: VENTRICULAR TACHYCARDIA
  3. NOREPINEPHRINE [Concomitant]
  4. XYLOCAINE [Suspect]
     Indication: VENTRICULAR TACHYCARDIA

REACTIONS (4)
  - Ventricular tachycardia [None]
  - Atrial fibrillation [None]
  - Drug ineffective [None]
  - Product quality issue [None]
